FAERS Safety Report 5143725-5 (Version None)
Quarter: 2006Q4

REPORT INFORMATION
  Report Type: 
  Country: None (occurrence: None)
  Receive Date: 20061104
  Receipt Date: 20060814
  Transmission Date: 20070319
  Serious: Yes (Hospitalization)
  Sender: FDA-Public Use
  Company Number: CL-ABBOTT-06P-034-0340901-00

PATIENT
  Sex: Male
  Weight: 55 kg

DRUGS (3)
  1. KALETRA [Suspect]
     Indication: HIV INFECTION
     Dosage: 800/200
     Route: 048
     Dates: start: 20060807
  2. KALETRA [Suspect]
     Route: 048
  3. LAMIVUDINE + ZIDOVUDINE [Concomitant]
     Indication: HIV INFECTION
     Route: 048
     Dates: start: 20060807

REACTIONS (7)
  - CHILLS [None]
  - CREPITATIONS [None]
  - HEADACHE [None]
  - MYALGIA [None]
  - PNEUMONIA [None]
  - PNEUMONIA STAPHYLOCOCCAL [None]
  - RELAPSING FEVER [None]
